FAERS Safety Report 8112433-0 (Version None)
Quarter: 2012Q1

REPORT INFORMATION
  Report Type: 
  Country: None (occurrence: None)
  Receive Date: 20120203
  Receipt Date: 20120127
  Transmission Date: 20120608
  Serious: Yes (Hospitalization)
  Sender: FDA-Public Use
  Company Number: JP-VERTEX PHARMACEUTICALS INC.-AE-2012-001593

PATIENT
  Age: 70 Year
  Sex: Male

DRUGS (3)
  1. RIBAVIRIN [Concomitant]
     Route: 048
  2. TELAVIC (TELAPREVIR) [Suspect]
     Route: 048
     Dates: start: 20120123
  3. PEGINTERFERON ALFA-2A [Concomitant]
     Route: 051

REACTIONS (1)
  - RASH [None]
